FAERS Safety Report 7752770-2 (Version None)
Quarter: 2011Q3

REPORT INFORMATION
  Report Type: 
  Country: None (occurrence: None)
  Receive Date: 20110915
  Receipt Date: 20110912
  Transmission Date: 20111222
  Serious: Yes (Other)
  Sender: FDA-Public Use
  Company Number: GB-ROCHE-802094

PATIENT
  Age: 65 Year
  Sex: Female

DRUGS (4)
  1. CALCICHEW D3 [Concomitant]
     Indication: OSTEOPOROSIS
     Route: 048
     Dates: start: 20050327
  2. OMEPRAZOLE [Concomitant]
     Indication: OESOPHAGITIS
     Route: 048
  3. IBANDRONATE SODIUM [Suspect]
     Indication: OSTEOPOROSIS
     Route: 042
     Dates: start: 20110527
  4. ATORVASTATIN [Concomitant]
     Indication: HYPERCHOLESTEROLAEMIA
     Route: 048
     Dates: start: 20110321

REACTIONS (8)
  - DYSPEPSIA [None]
  - MUSCLE TWITCHING [None]
  - HEADACHE [None]
  - ARTHRALGIA [None]
  - MYALGIA [None]
  - HYPOAESTHESIA [None]
  - DIARRHOEA [None]
  - PARAESTHESIA [None]
